FAERS Safety Report 14211102 (Version 1)
Quarter: 2017Q4

REPORT INFORMATION
  Report Type: Spontaneous
  Country: US (occurrence: US)
  Receive Date: 20171121
  Receipt Date: 20171121
  Transmission Date: 20180321
  Serious: No
  Sender: FDA-Public Use
  Company Number: US-ESPERO PHARMACEUTICALS-ESP201709-000089

PATIENT
  Sex: Male

DRUGS (1)
  1. NITROLINGUAL PUMPSPRAY [Suspect]
     Active Substance: NITROGLYCERIN

REACTIONS (1)
  - Accidental exposure to product [Unknown]
